FAERS Safety Report 14927283 (Version 1)
Quarter: 2018Q2

REPORT INFORMATION
  Report Type: Spontaneous
  Country: US (occurrence: US)
  Receive Date: 20180523
  Receipt Date: 20180523
  Transmission Date: 20180711
  Serious: No
  Sender: FDA-Public Use
  Company Number: US-PFIZER INC-2018208760

PATIENT
  Age: 43 Year
  Sex: Male

DRUGS (1)
  1. ALPRAZOLAM. [Suspect]
     Active Substance: ALPRAZOLAM
     Dosage: UNK

REACTIONS (5)
  - Gastrooesophageal reflux disease [Unknown]
  - Burn oesophageal [Unknown]
  - Pain [Unknown]
  - Cough [Unknown]
  - Burning sensation [Unknown]
